FAERS Safety Report 24753256 (Version 1)
Quarter: 2024Q4

REPORT INFORMATION
  Report Type: Spontaneous
  Country: US (occurrence: None)
  Receive Date: 20241219
  Receipt Date: 20241219
  Transmission Date: 20250115
  Serious: Yes (Hospitalization)
  Sender: Public
  Company Number: None

PATIENT
  Sex: Female

DRUGS (1)
  1. FABRAZYME [Suspect]
     Active Substance: AGALSIDASE BETA
     Indication: Fabry^s disease
     Dosage: OTHER QUANTITY : 105 MG (3 VIALS OF 35 MG);?FREQUENCY : EVERY OTHER WEEK;?
     Route: 042
     Dates: start: 20230420

REACTIONS (2)
  - Hospitalisation [None]
  - Intentional dose omission [None]
